FAERS Safety Report 9745922 (Version 2)
Quarter: 2013Q4

REPORT INFORMATION
  Report Type: Spontaneous
  Country: PR (occurrence: PR)
  Receive Date: 20131211
  Receipt Date: 20131211
  Transmission Date: 20140711
  Serious: No
  Sender: FDA-Public Use
  Company Number: PR-BAXTER-2013BAX045339

PATIENT
  Age: 19 Day
  Sex: Female
  Weight: 2.1 kg

DRUGS (6)
  1. 70% DEXTROSE INJECTION USP [Suspect]
     Indication: PARENTERAL NUTRITION
  2. POTASSIUM CHLORIDE INJECTION [Suspect]
     Indication: PARENTERAL NUTRITION
  3. 10% PREMASOL [Suspect]
     Indication: PARENTERAL NUTRITION
  4. STERILE WATER FOR INJECTION [Suspect]
     Indication: PARENTERAL NUTRITION
  5. GLUCONATE [Suspect]
     Indication: PARENTERAL NUTRITION
  6. CHLORIDE ION [Suspect]
     Indication: PARENTERAL NUTRITION

REACTIONS (1)
  - Hypercalcaemia [Recovered/Resolved]
